FAERS Safety Report 17418746 (Version 1)
Quarter: 2020Q1

REPORT INFORMATION
  Report Type: Spontaneous
  Country: ES (occurrence: ES)
  Receive Date: 20200214
  Receipt Date: 20200214
  Transmission Date: 20200409
  Serious: Yes (Other)
  Sender: FDA-Public Use
  Company Number: ES-PERRIGO-20ES002046

PATIENT
  Age: 35 Year
  Sex: Male

DRUGS (2)
  1. IBUPROFEN. [Suspect]
     Active Substance: IBUPROFEN
     Indication: PRODUCT USED FOR UNKNOWN INDICATION
     Dosage: 400 MG, SINGLE
     Route: 048
  2. TETANUS TOXOID [Concomitant]
     Active Substance: TETANUS TOXOIDS
     Indication: IMMUNISATION
     Dosage: UNK
     Route: 030

REACTIONS (1)
  - Drug-induced liver injury [Recovered/Resolved]
